FAERS Safety Report 8448945-X (Version None)
Quarter: 2012Q2

REPORT INFORMATION
  Report Type: 
  Country: None (occurrence: None)
  Receive Date: 20120619
  Receipt Date: 20120614
  Transmission Date: 20120825
  Serious: Yes (Hospitalization)
  Sender: FDA-Public Use
  Company Number: SE-GLAXOSMITHKLINE-B0808902A

PATIENT
  Sex: Male

DRUGS (11)
  1. POTIGA [Suspect]
     Indication: EPILEPSY
     Dosage: 600MG PER DAY
     Route: 048
  2. MOVIPREP [Concomitant]
  3. ACETAMINOPHEN [Concomitant]
  4. OCTOSTIM [Concomitant]
     Route: 045
  5. MELATONIN [Concomitant]
  6. CALCICHEW D3 [Concomitant]
  7. DIAZEPAM [Concomitant]
  8. RUFINAMIDE [Concomitant]
  9. NEURONTIN [Concomitant]
  10. VALPROATE SODIUM [Concomitant]
  11. FLUDENT [Concomitant]

REACTIONS (2)
  - CONVULSION [None]
  - FATIGUE [None]
